FAERS Safety Report 6592703-8 (Version None)
Quarter: 2010Q1

REPORT INFORMATION
  Report Type: 
  Country: None (occurrence: None)
  Receive Date: 20100222
  Receipt Date: 20100209
  Transmission Date: 20100710
  Serious: Yes (Hospitalization)
  Sender: FDA-Public Use
  Company Number: US-RANBAXY-2010RR-30718

PATIENT
  Age: 71 Year
  Sex: Male

DRUGS (7)
  1. GABAPENTIN [Suspect]
     Indication: DIABETIC NEUROPATHY
     Dosage: 300 MG, QID
  2. GABAPENTIN [Concomitant]
     Dosage: 300 MG, 3/WEEK
  3. ASPIRIN [Concomitant]
  4. ATENOLOL [Concomitant]
  5. CALCIUM ACETATE [Concomitant]
  6. INSULIN [Concomitant]
  7. VANCOMYCIN [Concomitant]
     Route: 042

REACTIONS (1)
  - MENTAL STATUS CHANGES [None]
